FAERS Safety Report 8906864 (Version 1)
Quarter: 2012Q4

REPORT INFORMATION
  Report Type: 
  Country: US (occurrence: US)
  Receive Date: 20121114
  Receipt Date: 20121114
  Transmission Date: 20130627
  Serious: Yes (Hospitalization)
  Sender: FDA-Public Use
  Company Number: US-BAYER-2012-117956

PATIENT
  Age: 53 Year
  Sex: Female
  Weight: 69 kg

DRUGS (19)
  1. YAZ [Suspect]
  2. GABAPENTIN [Concomitant]
     Dosage: 800 mg, UNK
     Route: 048
  3. GABAPENTIN [Concomitant]
  4. BUPROPION SR [Concomitant]
     Dosage: 150 mg, UNK
     Route: 048
  5. MIRTAZAPINE [Concomitant]
     Dosage: 15 mg, UNK
     Route: 048
  6. OXYBUTYNIN CHLORIDE [Concomitant]
     Dosage: 5 mg, UNK
     Route: 048
  7. SUMATRIPTAN SUCCINATE [Concomitant]
     Dosage: 100 mg, UNK
     Route: 048
  8. ALPRAZOLAM [Concomitant]
     Dosage: 0.25 mg, UNK
     Route: 048
  9. IBUPROFEN [Concomitant]
     Dosage: 800 mg, UNK
     Route: 048
  10. LOMOTIL [DIPHENOXYLATE HYDROCHLORIDE] [Concomitant]
     Indication: DIARRHEA
     Dosage: 1 tablet as needed
     Route: 048
  11. LOPERAMIDE [Concomitant]
     Dosage: 2 mg, as need maximum 8 /day
  12. XANAX [Concomitant]
  13. DIAZEPAM [Concomitant]
  14. NEURONTIN [Concomitant]
  15. OXYBUTYNIN [Concomitant]
  16. SUMATRIPTAN [Concomitant]
  17. CIPROFLOXACIN [Concomitant]
  18. WELLBUTRIN [Concomitant]
  19. IMITREX [Concomitant]

REACTIONS (1)
  - Pulmonary embolism [None]
